FAERS Safety Report 23320947 (Version 1)
Quarter: 2023Q4

REPORT INFORMATION
  Report Type: Spontaneous
  Country: US (occurrence: None)
  Receive Date: 20231219
  Receipt Date: 20231219
  Transmission Date: 20240110
  Serious: No
  Sender: FDA-Public Use
  Company Number: None

PATIENT
  Sex: Male

DRUGS (1)
  1. STELARA [Suspect]
     Active Substance: USTEKINUMAB
     Indication: Crohn^s disease
     Dosage: 90MG  EVERY 6 WEEKS UNDER THE SKIN?
     Route: 058
     Dates: start: 202004

REACTIONS (2)
  - Haematochezia [None]
  - Crohn^s disease [None]
